FAERS Safety Report 4905250-3 (Version None)
Quarter: 2006Q1

REPORT INFORMATION
  Report Type: 
  Country: None (occurrence: None)
  Receive Date: 20060208
  Receipt Date: 20051205
  Transmission Date: 20060701
  Serious: No
  Sender: FDA-Public Use
  Company Number: US-GLAXOSMITHKLINE-A0584640A

PATIENT
  Age: 64 Year
  Sex: Female

DRUGS (2)
  1. PAXIL [Suspect]
     Indication: DEPRESSION
     Dosage: 5MG PER DAY
     Route: 048
     Dates: start: 20051103, end: 20051125
  2. ASPIRIN [Concomitant]

REACTIONS (6)
  - BACK PAIN [None]
  - DEPRESSION [None]
  - DRY MOUTH [None]
  - FLATULENCE [None]
  - POLLAKIURIA [None]
  - SLEEP DISORDER [None]
